FAERS Safety Report 4839842-7 (Version None)
Quarter: 2005Q4

REPORT INFORMATION
  Report Type: 
  Country: None (occurrence: None)
  Receive Date: 20051129
  Receipt Date: 20051117
  Transmission Date: 20060501
  Serious: Yes (Hospitalization)
  Sender: FDA-Public Use
  Company Number: FR-SANOFI-SYNTHELABO-F01200502468

PATIENT
  Sex: Male

DRUGS (6)
  1. OXALIPLATIN [Suspect]
     Indication: COLON CANCER
     Route: 042
     Dates: start: 20050906, end: 20050906
  2. FLUOROURACIL [Suspect]
     Dosage: 700 MG IV BOLUS ON DAY 1 FOLLOWED BY 1050 MG CONTINUOUS INFUSION ON DAYS1 AND 2 EACH CYCLE
     Route: 042
     Dates: start: 20050906, end: 20050907
  3. LEUCOVORIN [Suspect]
     Dosage: ON DAYS 1 AND 2 OF EACH CYCLE
     Route: 042
     Dates: start: 20050906, end: 20050907
  4. BEVACIZUMAB [Suspect]
     Route: 042
     Dates: start: 20050906, end: 20050906
  5. LANZOR [Concomitant]
     Dosage: UNK
     Route: 065
  6. DOXAZOSIN [Concomitant]
     Dosage: UNK
     Route: 065

REACTIONS (2)
  - GENERAL PHYSICAL HEALTH DETERIORATION [None]
  - VOMITING [None]
